FAERS Safety Report 24189654 (Version 1)
Quarter: 2024Q3

REPORT INFORMATION
  Report Type: Spontaneous
  Country: CN (occurrence: CN)
  Receive Date: 20240808
  Receipt Date: 20240808
  Transmission Date: 20241017
  Serious: Yes (Hospitalization)
  Sender: PAREXEL
  Company Number: CN-SHANGHAI JUNSHI BIOSCIENCES CO., LTD.-CN2024010877

PATIENT

DRUGS (5)
  1. TORIPALIMAB [Suspect]
     Active Substance: TORIPALIMAB
     Indication: Malignant neoplasm of orbit
     Dosage: 240 MG, EVERY 21 DAYS
     Route: 041
     Dates: start: 20240717, end: 20240717
  2. NEDAPLATIN [Suspect]
     Active Substance: NEDAPLATIN
     Indication: Malignant neoplasm of orbit
     Dosage: 120 MG (D2), EVERY 21 DAYS
     Route: 041
     Dates: start: 20240717, end: 20240718
  3. GEMCITABINE HYDROCHLORIDE [Suspect]
     Active Substance: GEMCITABINE HYDROCHLORIDE
     Indication: Malignant neoplasm of orbit
     Dosage: 1.7 G (D1, D8), EVERY 21 DAYS AS A CYCLE
     Route: 041
     Dates: start: 20240717, end: 20240717
  4. SODIUM CHLORIDE [Concomitant]
     Active Substance: SODIUM CHLORIDE
     Indication: Medication dilution
     Dosage: 100 ML
     Dates: start: 20240717, end: 20240717
  5. SODIUM CHLORIDE [Concomitant]
     Active Substance: SODIUM CHLORIDE
     Indication: Medication dilution
     Dosage: 500 ML (D2), EVERY 21 DAYS
     Dates: start: 20240717, end: 20240717

REACTIONS (2)
  - White blood cell count decreased [Recovered/Resolved]
  - Off label use [Unknown]

NARRATIVE: CASE EVENT DATE: 20240717
